FAERS Safety Report 5244170-4 (Version None)
Quarter: 2007Q1

REPORT INFORMATION
  Report Type: 
  Country: None (occurrence: None)
  Receive Date: 20070222
  Receipt Date: 20070220
  Transmission Date: 20070707
  Serious: Yes (Life-Threatening, Hospitalization, Disabling, Other)
  Sender: FDA-Public Use
  Company Number: US-GLAXOSMITHKLINE-A0637964A

PATIENT
  Age: 15 Year
  Sex: Male

DRUGS (2)
  1. VALTREX [Suspect]
     Indication: HERPES SIMPLEX OPHTHALMIC
     Dosage: 500MG PER DAY
     Route: 048
     Dates: start: 20070101, end: 20070128
  2. ALLEGRA [Concomitant]

REACTIONS (6)
  - APHASIA [None]
  - CATATONIA [None]
  - DEPRESSED LEVEL OF CONSCIOUSNESS [None]
  - EATING DISORDER [None]
  - SOCIAL AVOIDANT BEHAVIOUR [None]
  - SOMNOLENCE [None]
